FAERS Safety Report 9803809 (Version 1)
Quarter: 2014Q1

REPORT INFORMATION
  Report Type: Spontaneous
  Country: US (occurrence: US)
  Receive Date: 20140108
  Receipt Date: 20140108
  Transmission Date: 20141002
  Serious: No
  Sender: FDA-Public Use
  Company Number: US-GLAXOSMITHKLINE-A1042280A

PATIENT
  Age: 74 Year
  Sex: Male

DRUGS (10)
  1. LOVAZA [Suspect]
     Indication: BLOOD TRIGLYCERIDES INCREASED
     Dosage: 2CAP TWICE PER DAY
     Route: 048
     Dates: start: 2012
  2. GABAPENTIN [Concomitant]
  3. GLUCOPHAGE [Concomitant]
  4. AMARYL [Concomitant]
  5. IRBESARTAN [Concomitant]
  6. SPIRIVA [Concomitant]
  7. ADVAIR [Concomitant]
  8. VITAMIN [Concomitant]
  9. SAW PALMETTO [Concomitant]
  10. ASPIRIN [Concomitant]

REACTIONS (2)
  - Blood glucose increased [Not Recovered/Not Resolved]
  - Blood pressure increased [Unknown]
